FAERS Safety Report 14677221 (Version 1)
Quarter: 2018Q1

REPORT INFORMATION
  Report Type: Spontaneous
  Country: US (occurrence: US)
  Receive Date: 20180323
  Receipt Date: 20180323
  Transmission Date: 20180509
  Serious: Yes (Other)
  Sender: FDA-Public Use
  Company Number: None

PATIENT
  Age: 61 Year
  Sex: Female
  Weight: 72 kg

DRUGS (1)
  1. MONISTAT [Suspect]
     Active Substance: MICONAZOLE NITRATE
     Indication: FUNGAL INFECTION
     Dosage: ?          OTHER STRENGTH:2%;QUANTITY:0.32 OUNCE(S);OTHER FREQUENCY:ONLY USED ONCE!;?
     Route: 061
     Dates: start: 20180323, end: 20180323

REACTIONS (4)
  - Vulvovaginal erythema [None]
  - Vulvovaginal swelling [None]
  - Wound [None]
  - Vulvovaginal burning sensation [None]

NARRATIVE: CASE EVENT DATE: 20180323
